FAERS Safety Report 18388722 (Version 3)
Quarter: 2020Q4

REPORT INFORMATION
  Report Type: Report from Study
  Country: US (occurrence: US)
  Receive Date: 20201015
  Receipt Date: 20201116
  Transmission Date: 20210114
  Serious: Yes (Other)
  Sender: FDA-Public Use
  Company Number: NVSC2020US272049

PATIENT
  Age: 68 Year
  Sex: Female

DRUGS (2)
  1. TAFINLAR [Suspect]
     Active Substance: DABRAFENIB MESYLATE
     Indication: ANAPLASTIC THYROID CANCER
     Dosage: 150 MG, BID
     Route: 048
     Dates: end: 20201019
  2. MEKINIST [Suspect]
     Active Substance: TRAMETINIB DIMETHYL SULFOXIDE
     Indication: ANAPLASTIC THYROID CANCER
     Dosage: 2 MG, QD
     Route: 048
     Dates: end: 20201019

REACTIONS (13)
  - Rash [Unknown]
  - Diarrhoea [Recovering/Resolving]
  - Disorientation [Not Recovered/Not Resolved]
  - Acne [Not Recovered/Not Resolved]
  - Dysphagia [Recovering/Resolving]
  - Decreased appetite [Not Recovered/Not Resolved]
  - Nausea [Unknown]
  - Fatigue [Unknown]
  - Tremor [Unknown]
  - Coeliac disease [Unknown]
  - Constipation [Not Recovered/Not Resolved]
  - Dyspepsia [Recovering/Resolving]
  - Muscle spasms [Recovering/Resolving]

NARRATIVE: CASE EVENT DATE: 20201019
